FAERS Safety Report 11176690 (Version 1)
Quarter: 2015Q2

REPORT INFORMATION
  Report Type: Spontaneous
  Country: US (occurrence: None)
  Receive Date: 20150609
  Receipt Date: 20150609
  Transmission Date: 20150821
  Serious: Yes (Life-Threatening, Other)
  Sender: FDA-Public Use
  Company Number: None

PATIENT
  Age: 67 Year
  Sex: Female
  Weight: 90.72 kg

DRUGS (1)
  1. CLONIDINE 0.1 MG 2541/V [Suspect]
     Active Substance: CLONIDINE
     Indication: HYPERTENSION
     Route: 048
     Dates: start: 20150607

REACTIONS (6)
  - Arthropathy [None]
  - Loss of consciousness [None]
  - Fall [None]
  - Contusion [None]
  - Local swelling [None]
  - Joint swelling [None]

NARRATIVE: CASE EVENT DATE: 20150607
